FAERS Safety Report 10076375 (Version 1)
Quarter: 2014Q2

REPORT INFORMATION
  Report Type: Spontaneous
  Country: US (occurrence: US)
  Receive Date: 20140414
  Receipt Date: 20140414
  Transmission Date: 20141212
  Serious: No
  Sender: FDA-Public Use
  Company Number: US-PFIZER INC-2014103791

PATIENT
  Sex: Female

DRUGS (1)
  1. ESTRING [Suspect]
     Dosage: UNK
     Route: 067

REACTIONS (5)
  - Pollakiuria [Unknown]
  - Muscle spasms [Unknown]
  - Vulvovaginal discomfort [Unknown]
  - Vulvovaginal pain [Unknown]
  - Intentional product misuse [Unknown]
